FAERS Safety Report 5094132-5 (Version None)
Quarter: 2006Q3

REPORT INFORMATION
  Report Type: 
  Country: None (occurrence: None)
  Receive Date: 20060831
  Receipt Date: 20060823
  Transmission Date: 20061208
  Serious: Yes (Hospitalization)
  Sender: FDA-Public Use
  Company Number: CM-MERCK-0608USA05682

PATIENT
  Age: 32 Year
  Sex: Male

DRUGS (1)
  1. STROMECTOL [Suspect]
     Route: 048
     Dates: start: 20060803, end: 20060803

REACTIONS (7)
  - ASTHENIA [None]
  - BACK PAIN [None]
  - CONJUNCTIVAL HAEMORRHAGE [None]
  - ENCEPHALOPATHY [None]
  - LOSS OF CONSCIOUSNESS [None]
  - PYREXIA [None]
  - URINARY INCONTINENCE [None]
